FAERS Safety Report 12198816 (Version 1)
Quarter: 2016Q1

REPORT INFORMATION
  Report Type: Spontaneous
  Country: US (occurrence: None)
  Receive Date: 20160321
  Receipt Date: 20160321
  Transmission Date: 20160526
  Serious: Yes (Other)
  Sender: FDA-Public Use
  Company Number: None

PATIENT
  Age: 69 Year
  Sex: Male
  Weight: 95.26 kg

DRUGS (5)
  1. VITAMIN B12 [Concomitant]
     Active Substance: CYANOCOBALAMIN
  2. BAY ASPIRIN [Concomitant]
  3. AMLODIPINE [Suspect]
     Active Substance: AMLODIPINE BESYLATE
     Indication: HYPERTENSION
     Route: 048
     Dates: start: 20160128, end: 20160229
  4. VITAMINS NOS [Concomitant]
     Active Substance: VITAMINS
  5. NATURE MADE DAILY DIABETES HEALTH PACK [Concomitant]

REACTIONS (4)
  - Pain in extremity [None]
  - Paraesthesia [None]
  - Arthralgia [None]
  - Hypoaesthesia [None]

NARRATIVE: CASE EVENT DATE: 20160318
